FAERS Safety Report 4937717-6 (Version None)
Quarter: 2006Q1

REPORT INFORMATION
  Report Type: 
  Country: None (occurrence: None)
  Receive Date: 20060309
  Receipt Date: 20060222
  Transmission Date: 20060701
  Serious: Yes (Other)
  Sender: FDA-Public Use
  Company Number: GBWYE420122FEB06

PATIENT
  Age: 55 Year
  Sex: Female
  Weight: 51.5 kg

DRUGS (1)
  1. ENBREL [Suspect]
     Indication: DRUG USE FOR UNKNOWN INDICATION
     Dosage: 25MG
     Route: 058
     Dates: start: 20040812, end: 20051117

REACTIONS (1)
  - NEUTROPENIA [None]
